FAERS Safety Report 20960937 (Version 2)
Quarter: 2022Q2

REPORT INFORMATION
  Report Type: Spontaneous
  Country: PL (occurrence: PL)
  Receive Date: 20220615
  Receipt Date: 20220624
  Transmission Date: 20220721
  Serious: Yes (Other)
  Sender: FDA-Public Use
  Company Number: PL-AUROBINDO-AUR-APL-2022-019175

PATIENT
  Age: 59 Year
  Sex: Male

DRUGS (25)
  1. VALSARTAN [Suspect]
     Active Substance: VALSARTAN
     Indication: Hypertension
     Dosage: 160 MILLIGRAM, ONCE A DAY
     Route: 065
  2. CYCLOSPORINE [Suspect]
     Active Substance: CYCLOSPORINE
     Indication: Dermatitis atopic
     Dosage: UNK
     Route: 065
  3. HYDROCHLOROTHIAZIDE [Suspect]
     Active Substance: HYDROCHLOROTHIAZIDE
     Indication: Hypertension
     Dosage: 25 MILLIGRAM, ONCE A DAY
     Route: 065
  4. AZATHIOPRINE [Suspect]
     Active Substance: AZATHIOPRINE
     Indication: Dermatitis atopic
     Dosage: UNK
     Route: 065
  5. AMITRIPTYLINE [Suspect]
     Active Substance: AMITRIPTYLINE
     Indication: Polyneuropathy
     Dosage: 120 MILLIGRAM, ONCE A DAY
     Route: 065
  6. CLIOQUINOL [Suspect]
     Active Substance: CLIOQUINOL
     Indication: Dermatitis atopic
     Dosage: UNK
     Route: 061
  7. DILTIAZEM [Suspect]
     Active Substance: DILTIAZEM
     Indication: Hypertension
     Dosage: 120 MILLIGRAM, ONCE A DAY
     Route: 065
  8. PREDNISOLONE [Suspect]
     Active Substance: PREDNISOLONE
     Indication: Dermatitis atopic
     Dosage: UNK
     Route: 061
  9. PREDNISOLONE [Suspect]
     Active Substance: PREDNISOLONE
     Indication: Steroid therapy
  10. FLUMETHASONE [Suspect]
     Active Substance: FLUMETHASONE
     Indication: Dermatitis atopic
     Dosage: UNK
     Route: 061
  11. FLUMETHASONE [Suspect]
     Active Substance: FLUMETHASONE
     Indication: Steroid therapy
  12. FLUOCINOLONE [Suspect]
     Active Substance: FLUOCINOLONE
     Indication: Dermatitis atopic
     Dosage: UNK
     Route: 061
  13. FLUOCINOLONE [Suspect]
     Active Substance: FLUOCINOLONE
     Indication: Steroid therapy
  14. GLICLAZIDE [Suspect]
     Active Substance: GLICLAZIDE
     Indication: Type 2 diabetes mellitus
     Dosage: 30 MILLIGRAM, ONCE A DAY
     Route: 065
  15. PSORALEN [Suspect]
     Active Substance: PSORALEN
     Indication: Dermatitis atopic
     Dosage: UNK
     Route: 065
  16. CETIRIZINE [Concomitant]
     Active Substance: CETIRIZINE HYDROCHLORIDE
     Indication: Asthma
     Dosage: 5 MILLIGRAM, ONCE A DAY
     Route: 065
  17. CLOBETASOL [Concomitant]
     Active Substance: CLOBETASOL
     Indication: Dermatitis atopic
     Dosage: UNK
     Route: 061
  18. FENOTEROL [Concomitant]
     Active Substance: FENOTEROL
     Indication: Asthma
     Dosage: INHALATION IF NECESSARY
     Route: 065
  19. FLUTICASONE [Concomitant]
     Active Substance: FLUTICASONE
     Indication: Asthma
     Dosage: UNK
     Route: 065
  20. ICHTHAMMOL [Concomitant]
     Active Substance: ICHTHAMMOL
     Indication: Dermatitis atopic
     Dosage: UNK
     Route: 065
  21. INSULIN LISPRO PROTAMINE SUSPENSION [Concomitant]
     Indication: Type 2 diabetes mellitus
     Dosage: UNK
     Route: 065
  22. LEDIPASVIR\SOFOSBUVIR [Concomitant]
     Active Substance: LEDIPASVIR\SOFOSBUVIR
     Indication: Hepatitis C
     Dosage: UNK
     Route: 065
     Dates: start: 2017
  23. METHYLPREDNISOLONE [Concomitant]
     Active Substance: METHYLPREDNISOLONE
     Indication: Dermatitis atopic
     Dosage: 4 MILLIGRAM, ONCE A DAY
     Route: 065
  24. SALMETEROL [Concomitant]
     Active Substance: SALMETEROL
     Indication: Asthma
     Dosage: 2, ONCE A DAY (INHALATIONS TWICE DAILY)
     Route: 065
  25. THEOPHYLLINE [Concomitant]
     Active Substance: THEOPHYLLINE
     Indication: Asthma
     Dosage: 250 MILLIGRAM, ONCE A DAY
     Route: 065

REACTIONS (5)
  - Acute kidney injury [Recovered/Resolved]
  - Hypertension [Not Recovered/Not Resolved]
  - Drug ineffective [Unknown]
  - Hypoglycaemia [Unknown]
  - Therapeutic response decreased [Unknown]
